FAERS Safety Report 8242340-4 (Version None)
Quarter: 2012Q1

REPORT INFORMATION
  Report Type: 
  Country: None (occurrence: None)
  Receive Date: 20120329
  Receipt Date: 20120327
  Transmission Date: 20120608
  Serious: Yes (Death)
  Sender: FDA-Public Use
  Company Number: US-ASTELLAS-2012US003108

PATIENT
  Sex: Female

DRUGS (2)
  1. ERLOTINIB HYDROCHLORIDE [Suspect]
     Indication: LUNG NEOPLASM MALIGNANT
     Dosage: 2-25MG, QOD
     Route: 048
     Dates: start: 20080225
  2. ERLOTINIB HYDROCHLORIDE [Suspect]
     Dosage: 100 MG, QOD
     Route: 048
     Dates: start: 20080225

REACTIONS (3)
  - INAPPROPRIATE SCHEDULE OF DRUG ADMINISTRATION [None]
  - DEATH [None]
  - INCORRECT DOSE ADMINISTERED [None]
